FAERS Safety Report 4461033-2 (Version None)
Quarter: 2004Q3

REPORT INFORMATION
  Report Type: 
  Country: None (occurrence: None)
  Receive Date: 20040923
  Receipt Date: 20040915
  Transmission Date: 20050211
  Serious: No
  Sender: FDA-Public Use
  Company Number: 04H-163-0273757-00

PATIENT
  Age: 30 Year
  Sex: Female

DRUGS (3)
  1. SODIUM CHLORIDE SOLUTION (SODIUM CHLORIDE) (SODIUM CHLORIDE) [Suspect]
     Indication: INFUSION
     Dosage: 500 ML, THEN 125 ML PER HOUR, I.U.
     Route: 015
  2. PROSTIN GEL [Concomitant]
  3. OXYTOCIN [Concomitant]

REACTIONS (6)
  - CAESAREAN SECTION [None]
  - COMPLICATIONS OF MATERNAL EXPOSURE TO THERAPEUTIC DRUGS [None]
  - FOETAL HEART RATE DECELERATION [None]
  - LABOUR COMPLICATION [None]
  - UMBILICAL CORD PROLAPSE [None]
  - WOUND DEHISCENCE [None]
